FAERS Safety Report 4788336-6 (Version None)
Quarter: 2005Q4

REPORT INFORMATION
  Report Type: 
  Country: None (occurrence: None)
  Receive Date: 20051003
  Receipt Date: 20050916
  Transmission Date: 20060501
  Serious: Yes (Other)
  Sender: FDA-Public Use
  Company Number: 2005-US-00229

PATIENT
  Age: 27 Year
  Sex: Female

DRUGS (2)
  1. PROMPT PHENYTOIN SODIUM [Suspect]
     Indication: CONVULSION
     Dosage: 400 MG, QD, ORAL
     Route: 048
  2. VORICONAZOLE [Suspect]
     Indication: CANDIDIASIS
     Dosage: 300 MG, BID, ORAL
     Route: 048

REACTIONS (5)
  - DRUG INEFFECTIVE [None]
  - DRUG INTERACTION [None]
  - DRUG LEVEL DECREASED [None]
  - ORAL CANDIDIASIS [None]
  - STEM CELL TRANSPLANT [None]
